FAERS Safety Report 5577973-7 (Version None)
Quarter: 2007Q4

REPORT INFORMATION
  Report Type: 
  Country: None (occurrence: None)
  Receive Date: 20071231
  Receipt Date: 20071221
  Transmission Date: 20080405
  Serious: Yes (Other)
  Sender: FDA-Public Use
  Company Number: GB-ROCHE-538612

PATIENT
  Age: 51 Year
  Sex: Female
  Weight: 140 kg

DRUGS (3)
  1. ORLISTAT [Suspect]
     Indication: OBESITY
     Route: 048
     Dates: start: 20070610, end: 20071001
  2. LOSARTAN POTASSIUM [Concomitant]
     Indication: BLOOD PRESSURE
     Dosage: DRUG REPORTED: LOSARTEN
     Route: 048
  3. SIMVASTATIN [Concomitant]
     Dosage: DRUG REPORTED: SIMVISTATIN
     Route: 048

REACTIONS (1)
  - MULTIPLE MYELOMA [None]
